FAERS Safety Report 11936594 (Version 1)
Quarter: 2016Q1

REPORT INFORMATION
  Report Type: Report from Study
  Country: US (occurrence: US)
  Receive Date: 20160121
  Receipt Date: 20160121
  Transmission Date: 20160526
  Serious: Yes (Hospitalization)
  Sender: FDA-Public Use
  Company Number: US-EISAI MEDICAL RESEARCH-EC-2015-010429

PATIENT
  Age: 43 Year
  Sex: Female

DRUGS (10)
  1. OXYCODONE [Concomitant]
     Active Substance: OXYCODONE
  2. LIDOCAINE 5% [Concomitant]
     Active Substance: LIDOCAINE
  3. LENVIMA [Interacting]
     Active Substance: LENVATINIB
     Route: 048
     Dates: start: 2015, end: 201510
  4. LISINOPRIL. [Suspect]
     Active Substance: LISINOPRIL
     Indication: PRODUCT USED FOR UNKNOWN INDICATION
     Route: 048
  5. LISINOPRIL. [Suspect]
     Active Substance: LISINOPRIL
     Route: 048
  6. LENVIMA [Interacting]
     Active Substance: LENVATINIB
     Indication: THYROID CANCER
     Route: 048
     Dates: start: 20150819, end: 2015
  7. LENVIMA [Interacting]
     Active Substance: LENVATINIB
     Route: 048
     Dates: start: 201510, end: 201512
  8. LENVIMA [Interacting]
     Active Substance: LENVATINIB
     Route: 048
     Dates: start: 201512
  9. LEVOTHYROXINE. [Concomitant]
     Active Substance: LEVOTHYROXINE
  10. NAPROSYN [Interacting]
     Active Substance: NAPROXEN
     Indication: PRODUCT USED FOR UNKNOWN INDICATION
     Dosage: UNKNOWN
     Route: 048

REACTIONS (15)
  - Rash [Unknown]
  - Pain in extremity [Unknown]
  - Palpitations [Recovered/Resolved]
  - Cough [Unknown]
  - Blister [Not Recovered/Not Resolved]
  - Blood pressure fluctuation [Unknown]
  - Pruritus [Unknown]
  - Somnolence [Unknown]
  - Swelling [Unknown]
  - Blood pressure increased [Recovering/Resolving]
  - Weight decreased [Unknown]
  - Rectal haemorrhage [Recovered/Resolved]
  - Drug interaction [Recovered/Resolved]
  - Dermatitis acneiform [Unknown]
  - Pain in jaw [Unknown]

NARRATIVE: CASE EVENT DATE: 2015
